FAERS Safety Report 12442498 (Version 1)
Quarter: 2016Q2

REPORT INFORMATION
  Report Type: Spontaneous
  Country: CA (occurrence: CA)
  Receive Date: 20160607
  Receipt Date: 20160607
  Transmission Date: 20160815
  Serious: Yes (Other)
  Sender: FDA-Public Use
  Company Number: CA-BAYER-2016-108911

PATIENT
  Sex: Female

DRUGS (2)
  1. CLARITIN RAPID DISSOLVE [Suspect]
     Active Substance: LORATADINE
     Indication: MULTIPLE ALLERGIES
     Dosage: UNK
  2. CLARITIN RAPID DISSOLVE [Suspect]
     Active Substance: LORATADINE
     Indication: MULTIPLE ALLERGIES
     Dosage: UNK
     Dates: start: 201606

REACTIONS (5)
  - Feeling abnormal [Recovered/Resolved]
  - Disorientation [Recovered/Resolved]
  - Anxiety [None]
  - Head discomfort [Recovered/Resolved]
  - Palpitations [None]

NARRATIVE: CASE EVENT DATE: 2016
